FAERS Safety Report 9244548 (Version 1)
Quarter: 2013Q2

REPORT INFORMATION
  Report Type: Spontaneous
  Country: US (occurrence: US)
  Receive Date: 20130422
  Receipt Date: 20130422
  Transmission Date: 20140414
  Serious: Yes (Hospitalization)
  Sender: FDA-Public Use
  Company Number: US-BRISTOL-MYERS SQUIBB COMPANY-18703777

PATIENT
  Age: 76 Year
  Sex: Female

DRUGS (2)
  1. COUMADIN [Suspect]
     Route: 065
  2. LETAIRIS [Suspect]
     Dosage: TAB
     Route: 048
     Dates: start: 20130130, end: 2013

REACTIONS (2)
  - Haemorrhage [Unknown]
  - Malaise [Unknown]
